FAERS Safety Report 14778012 (Version 10)
Quarter: 2025Q3

REPORT INFORMATION
  Report Type: Report from Study
  Country: JP (occurrence: JP)
  Receive Date: 20180419
  Receipt Date: 20250904
  Transmission Date: 20251020
  Serious: Yes (Hospitalization, Other)
  Sender: CHIESI
  Company Number: JP-AEGERION PHARMACEUTICALS-AEGR-2018-00029

PATIENT
  Age: 50 Year
  Sex: Female
  Weight: 50 kg

DRUGS (18)
  1. LOMITAPIDE [Suspect]
     Active Substance: LOMITAPIDE
     Indication: Type IIa hyperlipidaemia
     Dosage: 5 MILLIGRAM, QD
     Route: 048
     Dates: start: 20171225
  2. LOMITAPIDE [Suspect]
     Active Substance: LOMITAPIDE
     Dosage: 10 MILLIGRAM, QD
     Route: 048
     Dates: start: 20180305
  3. ICOSAPENT [Concomitant]
     Active Substance: ICOSAPENT
     Indication: Product used for unknown indication
     Route: 048
  4. PITAVASTATIN CALCIUM [Concomitant]
     Active Substance: PITAVASTATIN CALCIUM
     Indication: Hypercholesterolaemia
     Dosage: 2 MG, QD
     Route: 048
     Dates: start: 20161209, end: 20161229
  5. ZETIA [Concomitant]
     Active Substance: EZETIMIBE
     Indication: Hypercholesterolaemia
     Dosage: 10 MILLIGRAM, QD
     Route: 048
     Dates: start: 20161209, end: 20170109
  6. REPATHA [Concomitant]
     Active Substance: EVOLOCUMAB
     Indication: Hypercholesterolaemia
     Route: 058
     Dates: start: 20161229, end: 20170223
  7. REPATHA [Concomitant]
     Active Substance: EVOLOCUMAB
     Route: 058
     Dates: start: 20161229, end: 20180717
  8. ASPIRIN [Concomitant]
     Active Substance: ASPIRIN
     Indication: Coronary angioplasty
     Dosage: 100 MG, QD
     Route: 048
     Dates: start: 20161209
  9. PRASUGREL HYDROCHLORIDE [Concomitant]
     Active Substance: PRASUGREL HYDROCHLORIDE
     Indication: Coronary angioplasty
     Dosage: 3.75 MILLIGRAM, QD
     Route: 048
     Dates: start: 20161209, end: 20170117
  10. AZOSEMIDE [Concomitant]
     Active Substance: AZOSEMIDE
     Indication: Cardiac failure congestive
     Dosage: 60 MILLIGRAM, QD
     Route: 048
     Dates: start: 20161221
  11. CARVEDILOL [Concomitant]
     Active Substance: CARVEDILOL
     Indication: Acute myocardial infarction
     Dosage: 2.5 MILLIGRAM, QD
     Route: 048
     Dates: start: 20161224
  12. ICOSAPENT ETHYL [Concomitant]
     Active Substance: ICOSAPENT ETHYL
     Indication: Hypercholesterolaemia
     Dosage: 900 MILLIGRAM, BID
     Route: 048
     Dates: start: 20170420
  13. FERROUS FUMARATE [Concomitant]
     Active Substance: FERROUS FUMARATE
     Indication: Anaemia
     Dosage: 100 MILLIGRAM, QD
     Route: 048
     Dates: start: 20200930
  14. IVABRADINE HYDROCHLORIDE [Concomitant]
     Active Substance: IVABRADINE HYDROCHLORIDE
     Indication: Cardiac failure congestive
     Dosage: 2.5 MILLIGRAM, BID
     Route: 048
     Dates: start: 20200930
  15. SAMSCA [Concomitant]
     Active Substance: TOLVAPTAN
     Indication: Cardiac failure congestive
     Dosage: 3.75 MILLIGRAM, QD
     Route: 048
     Dates: start: 20200925
  16. NORMONAL [Concomitant]
     Indication: Cardiac failure congestive
     Dosage: 7.5 MILLIGRAM, QD
     Route: 048
     Dates: start: 20200925, end: 20201001
  17. FEBUXOSTAT [Concomitant]
     Active Substance: FEBUXOSTAT
     Indication: Hyperuricaemia
     Dosage: 40 MILLIGRAM, QD
     Route: 048
     Dates: start: 20170308, end: 20221028
  18. DROXIDOPA [Concomitant]
     Active Substance: DROXIDOPA
     Indication: Orthostatic hypotension
     Dosage: 600 MILLIGRAM, TID
     Route: 048
     Dates: start: 20221028

REACTIONS (15)
  - Cerebral infarction [Recovered/Resolved]
  - Haemorrhage subcutaneous [Recovered/Resolved]
  - Dizziness [Recovered/Resolved]
  - Dizziness [Recovered/Resolved]
  - Hyperkalaemia [Recovered/Resolved]
  - Renal failure [Recovered/Resolved]
  - Renal failure [Not Recovered/Not Resolved]
  - Cardiac failure congestive [Recovered/Resolved]
  - Cardiac failure chronic [Recovered/Resolved]
  - Retinal artery occlusion [Recovered/Resolved]
  - Cerebral infarction [Recovered/Resolved]
  - Cerebral infarction [Recovered/Resolved]
  - Hepatic function abnormal [Recovered/Resolved]
  - Pyrexia [Recovered/Resolved]
  - Drug interaction [Unknown]

NARRATIVE: CASE EVENT DATE: 20180205
